APPROVED DRUG PRODUCT: LAMIVUDINE AND ZIDOVUDINE
Active Ingredient: LAMIVUDINE; ZIDOVUDINE
Strength: 150MG;300MG
Dosage Form/Route: TABLET;ORAL
Application: A090679 | Product #001 | TE Code: AB
Applicant: MACLEODS PHARMACEUTICALS LTD
Approved: Aug 29, 2018 | RLD: No | RS: No | Type: RX